FAERS Safety Report 7804043-7 (Version None)
Quarter: 2011Q4

REPORT INFORMATION
  Report Type: 
  Country: None (occurrence: None)
  Receive Date: 20111010
  Receipt Date: 20111003
  Transmission Date: 20120403
  Serious: Yes (Other)
  Sender: FDA-Public Use
  Company Number: US-JNJFOC-20111001478

PATIENT
  Sex: Male

DRUGS (2)
  1. RAPAFLO [Suspect]
     Indication: PROSTATITIS
     Route: 048
     Dates: start: 20110910, end: 20110910
  2. LEVAQUIN [Suspect]
     Indication: PROSTATITIS
     Route: 048
     Dates: start: 20110823

REACTIONS (2)
  - ARRHYTHMIA SUPRAVENTRICULAR [None]
  - FEELING ABNORMAL [None]
